FAERS Safety Report 14660664 (Version 1)
Quarter: 2018Q1

REPORT INFORMATION
  Report Type: Spontaneous
  Country: CH (occurrence: CH)
  Receive Date: 20180320
  Receipt Date: 20180320
  Transmission Date: 20180509
  Serious: Yes (Life-Threatening, Hospitalization, Other)
  Sender: FDA-Public Use
  Company Number: CH-GLAXOSMITHKLINE-CH2018043377

PATIENT
  Age: 33 Year
  Sex: Female

DRUGS (16)
  1. VITAMIN A [Concomitant]
     Active Substance: VITAMIN A
     Indication: STEVENS-JOHNSON SYNDROME
     Dosage: 1 DF, QD
     Route: 065
     Dates: start: 20180305
  2. SEROQUEL XR [Suspect]
     Active Substance: QUETIAPINE FUMARATE
     Indication: BIPOLAR DISORDER
     Dosage: 400 MG, QD
     Route: 048
     Dates: start: 201710, end: 201803
  3. TAVEGYL [Concomitant]
     Active Substance: CLEMASTINE FUMARATE
     Indication: ANAPHYLACTIC REACTION
     Dosage: UNK
     Route: 065
     Dates: start: 20180302, end: 20180302
  4. CETIRIZINE [Concomitant]
     Active Substance: CETIRIZINE HYDROCHLORIDE
     Indication: ANAPHYLACTIC REACTION
     Dosage: 10 MG, QD
     Route: 065
     Dates: start: 20180302
  5. BETNESOL [Concomitant]
     Active Substance: BETAMETHASONE
     Indication: STEVENS-JOHNSON SYNDROME
     Dosage: 0.5 MG, TID
     Route: 065
     Dates: start: 20180305
  6. BULBOID [Concomitant]
     Indication: STEVENS-JOHNSON SYNDROME
     Dosage: 1 DF, QD
     Route: 065
     Dates: start: 20180305
  7. SOLU-MEDROL [Concomitant]
     Active Substance: METHYLPREDNISOLONE SODIUM SUCCINATE
     Indication: ANAPHYLACTIC REACTION
     Dosage: STOPPED ON 02.03 + REINTRODUCED ON 05.03
     Route: 065
     Dates: start: 20180302, end: 20180302
  8. MOVICOL [Concomitant]
     Active Substance: POLYETHYLENE GLYCOL 3350\POTASSIUM CHLORIDE\SODIUM BICARBONATE\SODIUM CHLORIDE
     Indication: STEVENS-JOHNSON SYNDROME
     Dosage: 1 DF, QD
     Route: 065
     Dates: start: 20180305
  9. LACRYCON [Concomitant]
     Active Substance: HYALURONATE SODIUM
     Indication: STEVENS-JOHNSON SYNDROME
     Dosage: 1 GTT, 6D
     Route: 065
     Dates: start: 20180305
  10. LAMICTAL [Suspect]
     Active Substance: LAMOTRIGINE
     Indication: BIPOLAR DISORDER
     Dosage: 25 MG, QD
     Route: 048
     Dates: start: 20180220, end: 20180302
  11. PREDNISONE. [Concomitant]
     Active Substance: PREDNISONE
     Indication: ANAPHYLACTIC REACTION
     Dosage: UNK
     Route: 065
     Dates: start: 20180302, end: 20180305
  12. CLEXANE [Concomitant]
     Active Substance: ENOXAPARIN SODIUM
     Indication: STEVENS-JOHNSON SYNDROME
     Dosage: 40 MG, QD
     Route: 065
     Dates: start: 20180305
  13. PRIVIGEN [Concomitant]
     Active Substance: HUMAN IMMUNOGLOBULIN G
     Indication: STEVENS-JOHNSON SYNDROME
     Dosage: 50 MG, QD
     Route: 065
     Dates: start: 201803, end: 201803
  14. SOLU-MEDROL [Concomitant]
     Active Substance: METHYLPREDNISOLONE SODIUM SUCCINATE
     Indication: STEVENS-JOHNSON SYNDROME
  15. ADRENALINE [Concomitant]
     Active Substance: EPINEPHRINE
     Indication: ANAPHYLACTIC REACTION
     Dosage: UNK
     Route: 065
     Dates: start: 20180302, end: 20180302
  16. CETIRIZINE [Concomitant]
     Active Substance: CETIRIZINE HYDROCHLORIDE
     Indication: STEVENS-JOHNSON SYNDROME

REACTIONS (1)
  - Stevens-Johnson syndrome [Recovered/Resolved]

NARRATIVE: CASE EVENT DATE: 20180304
